FAERS Safety Report 5074265-X (Version None)
Quarter: 2006Q3

REPORT INFORMATION
  Report Type: 
  Country: None (occurrence: None)
  Receive Date: 20060803
  Receipt Date: 20060727
  Transmission Date: 20061208
  Serious: Yes (Hospitalization)
  Sender: FDA-Public Use
  Company Number: AU-2006-020848

PATIENT
  Age: 86 Year
  Sex: Female

DRUGS (8)
  1. SOTALOL HYDROCHLORIDE [Suspect]
     Indication: ARRHYTHMIA
     Dosage: 240 MG, 1X/DAY
     Dates: end: 20040321
  2. LANOXIN [Suspect]
     Indication: ARRHYTHMIA
     Dosage: 2  1X/DAY, ORAL
     Route: 048
     Dates: end: 20040321
  3. ZANEDIP (LERCANIDIPINE HYDROCHLORIDE) [Concomitant]
  4. PLAVIX [Concomitant]
  5. ASTRIX (ACETYLSALICYLIC ACID) [Concomitant]
  6. RAMIPRIL [Concomitant]
  7. INDAPAMIDE [Concomitant]
  8. RABEPRAZOLE SODIUM [Concomitant]

REACTIONS (4)
  - BRADYCARDIA [None]
  - CIRCULATORY COLLAPSE [None]
  - DIZZINESS POSTURAL [None]
  - LOSS OF CONSCIOUSNESS [None]
